FAERS Safety Report 5756085-3 (Version None)
Quarter: 2008Q2

REPORT INFORMATION
  Report Type: 
  Country: None (occurrence: None)
  Receive Date: 20080602
  Receipt Date: 20080528
  Transmission Date: 20081010
  Serious: No
  Sender: FDA-Public Use
  Company Number: US-BOEHRINGER INGELHEIM GMBH, GERMANY-2008-BP-08393BP

PATIENT
  Sex: Male

DRUGS (2)
  1. FLOMAX [Suspect]
     Route: 048
     Dates: start: 20070501
  2. LASIX [Concomitant]

REACTIONS (1)
  - BALANCE DISORDER [None]
